FAERS Safety Report 9871243 (Version 1)
Quarter: 2014Q1

REPORT INFORMATION
  Report Type: Spontaneous
  Country: US (occurrence: US)
  Receive Date: 20140205
  Receipt Date: 20140205
  Transmission Date: 20141002
  Serious: Yes (Death)
  Sender: FDA-Public Use
  Company Number: US-GLAXOSMITHKLINE-A1059501A

PATIENT
  Age: 50 Year
  Sex: Male

DRUGS (1)
  1. HYCAMTIN [Suspect]
     Indication: BRONCHIAL CARCINOMA
     Dosage: 4MG SEE DOSAGE TEXT
     Route: 048
     Dates: start: 20131210, end: 20140126

REACTIONS (1)
  - Death [Fatal]
